FAERS Safety Report 6421878-6 (Version None)
Quarter: 2009Q4

REPORT INFORMATION
  Report Type: 
  Country: None (occurrence: None)
  Receive Date: 20091030
  Receipt Date: 20091022
  Transmission Date: 20100525
  Serious: Yes (Hospitalization, Other)
  Sender: FDA-Public Use
  Company Number: US-AMGEN-KDL370908

PATIENT
  Sex: Female

DRUGS (7)
  1. ENBREL [Suspect]
     Route: 064
     Dates: start: 20030501
  2. ORAL CONTRACEPTIVE NOS [Concomitant]
     Route: 064
  3. PREDNISONE [Concomitant]
     Route: 064
  4. VITAMIN TAB [Concomitant]
     Route: 064
  5. CALCIUM [Concomitant]
     Route: 064
  6. IRON [Concomitant]
     Route: 064
  7. MAGNESIUM SULFATE [Concomitant]
     Route: 064

REACTIONS (2)
  - FOETAL HEART RATE DECREASED [None]
  - NEONATAL LUPUS ERYTHEMATOSUS [None]
